FAERS Safety Report 7296315-2 (Version None)
Quarter: 2011Q1

REPORT INFORMATION
  Report Type: 
  Country: None (occurrence: None)
  Receive Date: 20110216
  Receipt Date: 20110204
  Transmission Date: 20110831
  Serious: Yes (Death, Hospitalization, Other)
  Sender: FDA-Public Use
  Company Number: JP-BAYER-200912911BYL

PATIENT
  Sex: Male
  Weight: 50.2 kg

DRUGS (18)
  1. TAKEPRON [Concomitant]
     Dosage: SINCE BEFORE ADMINISTRATION
     Route: 048
  2. LIVACT [Concomitant]
     Dosage: SINCE BEFORE ADMINISTRATION
     Route: 048
  3. JUVELA [Concomitant]
     Dosage: SINCE BEFORE ADMINIDTRATION
     Route: 048
  4. FRANDOL [Concomitant]
     Dosage: SINCE BEFORE ADMINISTRATION
     Route: 062
  5. TANNALBIN [Concomitant]
     Dosage: SINCE BEFORE ADMINISTRATION
     Route: 048
  6. PREDNISOLONE [Concomitant]
     Dosage: SINCE BEFORE ADMINISTRATION
     Route: 048
  7. PERSANTIN [Concomitant]
     Dosage: SINCE BEFORE ADMINIDTRATION
     Route: 048
  8. LOPEMIN [Concomitant]
     Dosage: SINCE BEFORE ADMINISTRATION
     Route: 048
  9. FALKAMIN [Concomitant]
     Dosage: DAILY DOSE 12.45 MG
     Route: 048
  10. NEXAVAR [Suspect]
     Dosage: 400 MG, BID
     Route: 048
     Dates: start: 20090826, end: 20100512
  11. ALDACTONE [Concomitant]
     Dosage: SINCE BEFORE ADMINISTRATION
     Route: 048
  12. URSO 250 [Concomitant]
     Dosage: SINCE BEFORE ADMINISTRATION
     Route: 048
  13. GLAKAY [Concomitant]
     Dosage: SINCE BEFORE ADMINISTRATION
     Route: 048
  14. LASIX [Concomitant]
     Dosage: SINCE BEFORE ADMINISTRATION
     Route: 048
  15. NEXAVAR [Suspect]
     Indication: HEPATIC NEOPLASM MALIGNANT
     Route: 048
     Dates: start: 20090702, end: 20090729
  16. NEXAVAR [Suspect]
     Route: 048
     Dates: start: 20090805
  17. ALOSITOL [Concomitant]
     Dosage: SINCE BEFORE ADMINISTRATION
     Route: 048
  18. BIOFERMIN [Concomitant]
     Dosage: SINCE BEFORE ADMINISTRATION
     Route: 048

REACTIONS (5)
  - MALAISE [None]
  - HEPATIC NEOPLASM MALIGNANT [None]
  - HEPATIC FUNCTION ABNORMAL [None]
  - PALMAR-PLANTAR ERYTHRODYSAESTHESIA SYNDROME [None]
  - PLATELET COUNT DECREASED [None]
